FAERS Safety Report 19235219 (Version 2)
Quarter: 2021Q2

REPORT INFORMATION
  Report Type: Spontaneous
  Country: US (occurrence: US)
  Receive Date: 20210509
  Receipt Date: 20210521
  Transmission Date: 20210717
  Serious: No
  Sender: FDA-Public Use
  Company Number: US-ORGANON-O2105USA000223

PATIENT
  Sex: Female

DRUGS (1)
  1. ASMANEX [Suspect]
     Active Substance: MOMETASONE FUROATE
     Indication: HYPERSENSITIVITY
     Dosage: (ASMANEX TWISTHALER 220 MICROGRAM 30 DOSE),1 PUFF PER DAY
     Dates: start: 20210429, end: 20210429

REACTIONS (5)
  - Poor quality device used [Unknown]
  - Product dose omission issue [Unknown]
  - Dyspnoea [Not Recovered/Not Resolved]
  - Device malfunction [Unknown]
  - Circumstance or information capable of leading to medication error [Unknown]
